FAERS Safety Report 18085855 (Version 1)
Quarter: 2020Q3

REPORT INFORMATION
  Report Type: Spontaneous
  Country: CN (occurrence: CN)
  Receive Date: 20200729
  Receipt Date: 20200729
  Transmission Date: 20201103
  Serious: Yes (Hospitalization, Other)
  Sender: FDA-Public Use
  Company Number: CN-GLAXOSMITHKLINE-CN2020APC138292

PATIENT
  Age: 6 Year
  Sex: Male
  Weight: 6 kg

DRUGS (2)
  1. DEPAKINE CHRONO TABLET [Suspect]
     Active Substance: VALPROIC ACID
     Indication: EPILEPSY
     Dosage: 0.5 G, QD
     Route: 048
     Dates: start: 20200617, end: 20200702
  2. LAMICTAL [Suspect]
     Active Substance: LAMOTRIGINE
     Indication: EPILEPSY
     Dosage: 10 MG, QD
     Route: 048
     Dates: start: 20200617, end: 20200702

REACTIONS (5)
  - Condition aggravated [Recovering/Resolving]
  - Rash maculo-papular [Recovering/Resolving]
  - Rash pruritic [Recovering/Resolving]
  - Dermatitis bullous [Recovering/Resolving]
  - Erythema multiforme [Recovering/Resolving]

NARRATIVE: CASE EVENT DATE: 20200627
